FAERS Safety Report 24960872 (Version 1)
Quarter: 2025Q1

REPORT INFORMATION
  Report Type: Spontaneous
  Country: US (occurrence: None)
  Receive Date: 20250211
  Receipt Date: 20250211
  Transmission Date: 20250409
  Serious: Yes (Life-Threatening, Other)
  Sender: FDA-CTU
  Company Number: None

PATIENT
  Age: 58 Year
  Sex: Female
  Weight: 58.5 kg

DRUGS (2)
  1. LEVOFLOXACIN [Suspect]
     Active Substance: LEVOFLOXACIN
     Dosage: FREQUENCY : DAILY;?
     Route: 048
     Dates: start: 20240927, end: 20241014
  2. FLONASE [Suspect]
     Active Substance: FLUTICASONE PROPIONATE

REACTIONS (10)
  - Musculoskeletal stiffness [None]
  - Pain in extremity [None]
  - Arthralgia [None]
  - Rotator cuff syndrome [None]
  - Oedema [None]
  - Subclavian artery occlusion [None]
  - Arthralgia [None]
  - Wrist fracture [None]
  - Sleep disorder [None]
  - Joint instability [None]

NARRATIVE: CASE EVENT DATE: 20241006
